FAERS Safety Report 9952373 (Version 1)
Quarter: 2014Q1

REPORT INFORMATION
  Report Type: Spontaneous
  Country: US (occurrence: US)
  Receive Date: 20140304
  Receipt Date: 20140304
  Transmission Date: 20141002
  Serious: No
  Sender: FDA-Public Use
  Company Number: US-PFIZER INC-2014061971

PATIENT
  Age: 49 Year
  Sex: Female
  Weight: 122.45 kg

DRUGS (1)
  1. LYRICA [Suspect]
     Indication: FIBROMYALGIA
     Dosage: 300 MG, 2X/DAY
     Dates: end: 20140228

REACTIONS (2)
  - Pain [Not Recovered/Not Resolved]
  - Thinking abnormal [Unknown]
